FAERS Safety Report 7341391-1 (Version None)
Quarter: 2011Q1

REPORT INFORMATION
  Report Type: 
  Country: None (occurrence: None)
  Receive Date: 20110309
  Receipt Date: 20110228
  Transmission Date: 20110831
  Serious: Yes (Other)
  Sender: FDA-Public Use
  Company Number: US-MERCK-1001USA01364

PATIENT
  Age: 73 Year
  Sex: Female
  Weight: 69 kg

DRUGS (4)
  1. FOSAMAX [Suspect]
     Indication: BONE DENSITY DECREASED
     Route: 048
     Dates: start: 20040122, end: 20090310
  2. FOSAMAX [Suspect]
     Route: 048
     Dates: start: 20020201
  3. LOVASTATIN [Concomitant]
     Indication: BLOOD CHOLESTEROL INCREASED
     Route: 065
     Dates: start: 20010101
  4. FOSAMAX [Suspect]
     Route: 048
     Dates: end: 20040122

REACTIONS (26)
  - TOOTH FRACTURE [None]
  - MALIGNANT MELANOMA [None]
  - ANGINA PECTORIS [None]
  - MOUTH ULCERATION [None]
  - OVERDOSE [None]
  - JOINT SPRAIN [None]
  - BUNION [None]
  - CELLULITIS [None]
  - SCIATICA [None]
  - BONE DISORDER [None]
  - DYSPEPSIA [None]
  - CATARACT [None]
  - STOMATITIS [None]
  - INTERVERTEBRAL DISC DEGENERATION [None]
  - DEPRESSION [None]
  - FOOT DEFORMITY [None]
  - INTERVERTEBRAL DISC PROTRUSION [None]
  - ARTHRALGIA [None]
  - SQUAMOUS CELL CARCINOMA [None]
  - BENIGN NEOPLASM OF SPINAL CORD [None]
  - OSTEOPOROSIS [None]
  - ANXIETY [None]
  - EROSIVE OESOPHAGITIS [None]
  - SWELLING [None]
  - PAIN IN JAW [None]
  - DIVERTICULUM [None]
